FAERS Safety Report 7090831-4 (Version None)
Quarter: 2010Q4

REPORT INFORMATION
  Report Type: 
  Country: None (occurrence: None)
  Receive Date: 20101012
  Receipt Date: 20100629
  Transmission Date: 20110411
  Serious: No
  Sender: FDA-Public Use
  Company Number: US_001200

PATIENT
  Sex: Male
  Weight: 220 kg

DRUGS (1)
  1. KUVAN [Suspect]
     Indication: PHENYLKETONURIA
     Dosage: 1800 MG QD, ORAL
     Route: 048
     Dates: start: 20091210, end: 20100601

REACTIONS (2)
  - NAUSEA [None]
  - VOMITING [None]
